FAERS Safety Report 9282583 (Version 1)
Quarter: 2013Q2

REPORT INFORMATION
  Report Type: Spontaneous
  Country: US (occurrence: US)
  Receive Date: 20130510
  Receipt Date: 20130510
  Transmission Date: 20140414
  Serious: No
  Sender: FDA-Public Use
  Company Number: US-TEVA-404313USA

PATIENT
  Age: 53 Year
  Sex: Female
  Weight: 62.65 kg

DRUGS (2)
  1. PLAN B ONE-STEP [Suspect]
     Indication: POST COITAL CONTRACEPTION
     Dosage: 1.5 MILLIGRAM DAILY;
     Route: 048
     Dates: start: 20130501, end: 20130501
  2. PARAGARD 380A [Concomitant]
     Indication: CONTRACEPTION
     Route: 015
     Dates: start: 2003

REACTIONS (3)
  - Menstruation irregular [Recovered/Resolved]
  - Metrorrhagia [Not Recovered/Not Resolved]
  - Fatigue [Unknown]
